FAERS Safety Report 7583383-3 (Version None)
Quarter: 2011Q2

REPORT INFORMATION
  Report Type: 
  Country: None (occurrence: None)
  Receive Date: 20110627
  Receipt Date: 20110627
  Transmission Date: 20111010
  Serious: Yes (Life-Threatening)
  Sender: FDA-Public Use
  Company Number: None

PATIENT
  Age: 3 Year
  Sex: Male
  Weight: 15 kg

DRUGS (1)
  1. XYREM [Suspect]
     Indication: ACCIDENTAL EXPOSURE
     Dosage: 4.5 GMS 1 PO
     Route: 048
     Dates: start: 20110623, end: 20110623

REACTIONS (5)
  - MEDICATION ERROR [None]
  - ACCIDENTAL DRUG INTAKE BY CHILD [None]
  - RESPIRATORY DEPRESSION [None]
  - BRADYCARDIA [None]
  - VOMITING [None]
